FAERS Safety Report 9243358 (Version 2)
Quarter: 2013Q2

REPORT INFORMATION
  Report Type: Spontaneous
  Country: DE (occurrence: DE)
  Receive Date: 20130420
  Receipt Date: 20130607
  Transmission Date: 20140414
  Serious: Yes (Hospitalization)
  Sender: FDA-Public Use
  Company Number: DE-B.I. PHARMACEUTICALS,INC./RIDGEFIELD-2013-DE-01154DE

PATIENT
  Sex: Male
  Weight: 96 kg

DRUGS (5)
  1. PRADAXA [Suspect]
     Indication: ATRIAL FIBRILLATION
     Dosage: 220 MG
     Dates: start: 20130308, end: 20130314
  2. PANTOPRAZOL 40 MG [Concomitant]
     Dosage: 80 MG
  3. L-THYROXIN 75 (LEVOTHYROXIN) [Concomitant]
     Dosage: 75 NR
  4. MOXONIDIN 0,4 [Concomitant]
     Dosage: 0.4 NR
  5. DELIX 5MG (RAMIPRIL) [Concomitant]
     Dosage: 5 MG

REACTIONS (9)
  - Gastric haemorrhage [Recovered/Resolved]
  - Mucosal haemorrhage [Recovered/Resolved]
  - Duodenal ulcer [Recovered/Resolved]
  - Melaena [Recovered/Resolved]
  - Cardiovascular insufficiency [Recovered/Resolved]
  - Asthenia [Recovered/Resolved]
  - Anaemia [Recovered/Resolved]
  - Duodenitis [Recovered/Resolved]
  - Ventricular extrasystoles [Recovered/Resolved]
